FAERS Safety Report 9138091 (Version 1)
Quarter: 2013Q1

REPORT INFORMATION
  Report Type: Spontaneous
  Country: US (occurrence: US)
  Receive Date: 20130304
  Receipt Date: 20130304
  Transmission Date: 20140127
  Serious: Yes (Other)
  Sender: FDA-Public Use
  Company Number: US-PFIZER INC-2013073965

PATIENT
  Sex: 0

DRUGS (2)
  1. PRISTIQ [Suspect]
     Dosage: UNK
  2. CITALOPRAM [Suspect]
     Dosage: UNK

REACTIONS (1)
  - Depression [Unknown]
